FAERS Safety Report 16199232 (Version 1)
Quarter: 2019Q2

REPORT INFORMATION
  Report Type: Spontaneous
  Country: US (occurrence: US)
  Receive Date: 20190415
  Receipt Date: 20190415
  Transmission Date: 20190711
  Serious: No
  Sender: FDA-Public Use
  Company Number: US-ELI_LILLY_AND_COMPANY-US201904002254

PATIENT
  Age: 75 Year
  Sex: Female

DRUGS (2)
  1. FORTEO [Suspect]
     Active Substance: TERIPARATIDE
     Indication: PRODUCT USED FOR UNKNOWN INDICATION
     Dosage: UNK UNK, UNKNOWN
     Route: 065
     Dates: start: 20190205
  2. TYMLOS [Suspect]
     Active Substance: ABALOPARATIDE
     Indication: OSTEOPOROSIS
     Dosage: 80 UG, DAILY
     Route: 058
     Dates: start: 20181219, end: 20190122

REACTIONS (6)
  - Nausea [Unknown]
  - Insomnia [Unknown]
  - Muscle spasms [Unknown]
  - Blood pressure increased [Unknown]
  - Injection site pruritus [Unknown]
  - Headache [Unknown]
